FAERS Safety Report 4682800-6 (Version None)
Quarter: 2005Q2

REPORT INFORMATION
  Report Type: 
  Country: None (occurrence: None)
  Receive Date: 20050531
  Receipt Date: 20041208
  Transmission Date: 20051028
  Serious: Yes (Death)
  Sender: FDA-Public Use
  Company Number: 200419408US

PATIENT
  Age: 64 Year
  Sex: Female
  Weight: 74 kg

DRUGS (2)
  1. LOVENOX [Suspect]
     Indication: SURGERY
     Dosage: 1 MG/KG Q12H SC
     Route: 058
     Dates: start: 20041201, end: 20041204
  2. WARFARIN [Concomitant]

REACTIONS (1)
  - CEREBRAL HAEMORRHAGE [None]
